FAERS Safety Report 11313375 (Version 1)
Quarter: 2015Q3

REPORT INFORMATION
  Report Type: Report from Study
  Country: US (occurrence: US)
  Receive Date: 20150727
  Receipt Date: 20150727
  Transmission Date: 20151125
  Serious: Yes (Hospitalization, Other)
  Sender: FDA-Public Use
  Company Number: US-BAXALTA-2015BAX023496

PATIENT
  Sex: Female
  Weight: 95 kg

DRUGS (2)
  1. HUMAN NORMAL IMMUNOGLOBULIN; LIQUID [Suspect]
     Active Substance: HUMAN IMMUNOGLOBULIN G
     Indication: HYPOGAMMAGLOBULINAEMIA
     Dosage: 1X A MONTH
     Route: 042
     Dates: end: 201502
  2. HUMAN NORMAL IMMUNOGLOBULIN; LIQUID [Suspect]
     Active Substance: HUMAN IMMUNOGLOBULIN G
     Dosage: UNK, 1X A MONTH
     Route: 042
     Dates: end: 201502

REACTIONS (5)
  - Visual impairment [Not Recovered/Not Resolved]
  - Dizziness [Recovering/Resolving]
  - Eye oedema [Recovering/Resolving]
  - Migraine [Recovering/Resolving]
  - Balance disorder [Recovering/Resolving]

NARRATIVE: CASE EVENT DATE: 2014
